FAERS Safety Report 6291555-3 (Version None)
Quarter: 2009Q3

REPORT INFORMATION
  Report Type: 
  Country: None (occurrence: None)
  Receive Date: 20090730
  Receipt Date: 20090721
  Transmission Date: 20100115
  Serious: Yes (Other)
  Sender: FDA-Public Use
  Company Number: PHHY2009BR30193

PATIENT
  Age: 39 Year
  Sex: Female

DRUGS (2)
  1. TRILEPTAL [Suspect]
     Dosage: 600MG IN THE MORNING, 600MG IN THE AFTERNOON AND 900MG AT NIGHT
     Dates: end: 20081101
  2. TRILEPTAL [Suspect]
     Dosage: 600MG IN THE MORNING, 600MG IN THE AFTERNOON AND 900MG AT NIGHT

REACTIONS (1)
  - PETIT MAL EPILEPSY [None]
